FAERS Safety Report 4569113-8 (Version None)
Quarter: 2005Q1

REPORT INFORMATION
  Report Type: 
  Country: None (occurrence: None)
  Receive Date: 20050126
  Receipt Date: 20050126
  Transmission Date: 20050727
  Serious: Yes (Other)
  Sender: FDA-Public Use
  Company Number: None

PATIENT
  Sex: Female
  Weight: 48.9885 kg

DRUGS (2)
  1. TMP SULFA (GENERIC) [Suspect]
     Indication: URINARY TRACT INFECTION
     Dosage: 80/400  TWO BID    7-10 DAYS TX
     Dates: start: 20040911
  2. LEVOXYL [Concomitant]

REACTIONS (2)
  - DIARRHOEA [None]
  - VOMITING [None]
